FAERS Safety Report 17142332 (Version 2)
Quarter: 2019Q4

REPORT INFORMATION
  Report Type: Spontaneous
  Country: DE (occurrence: DE)
  Receive Date: 20191211
  Receipt Date: 20191216
  Transmission Date: 20200122
  Serious: Yes (Hospitalization)
  Sender: FDA-Public Use
  Company Number: DE-MYLANLABS-2019M1120245

PATIENT
  Age: 84 Year
  Sex: Female
  Weight: 64 kg

DRUGS (11)
  1. DABIGATRAN [Concomitant]
     Active Substance: DABIGATRAN
     Dosage: 110 MG, 1-0-1-0, TABLETTEN
     Route: 048
  2. MOVICOL [Concomitant]
     Active Substance: POLYETHYLENE GLYCOL 3350\POTASSIUM CHLORIDE\SODIUM BICARBONATE\SODIUM CHLORIDE
     Dosage: 1-1-0-0, BEUTEL
     Route: 048
  3. RANITIDIN [Concomitant]
     Active Substance: RANITIDINE HYDROCHLORIDE
     Dosage: 150 MG, 1-0-0-0, TABLETTEN
     Route: 048
  4. CANDESARTAN. [Concomitant]
     Active Substance: CANDESARTAN
     Dosage: 32 MG, 1-0-0-0, TABLETTEN
     Route: 048
  5. AMIODARONE [Suspect]
     Active Substance: AMIODARONE
     Indication: PRODUCT USED FOR UNKNOWN INDICATION
     Dosage: 200 MG, 1-0-0-0, TABLETTEN
     Route: 048
  6. IPRATROPIUMBROMID ARROW [Concomitant]
     Dosage: 20 ?G, 4-6X/TAG, DOSIERAEROSOL
     Route: 055
  7. SODIUM SELENITE [Concomitant]
     Active Substance: SODIUM SELENITE
     Dosage: 100 MG, 1-0-0-0, L?SUNG
     Route: 048
  8. SALBUTAMOL [Concomitant]
     Active Substance: ALBUTEROL
     Dosage: 0.1 MG, 4-6X/TAG, DOSIERAEROSOL
     Route: 055
  9. FENTANYL. [Concomitant]
     Active Substance: FENTANYL
     Dosage: 12 ?G/H, ALLE 3 TAGE, PFLASTER TRANSDERMAL
     Route: 062
  10. ATORVASTATIN [Concomitant]
     Active Substance: ATORVASTATIN
     Dosage: 20 MG, 0-0-1-0, TABLETTEN
     Route: 048
  11. LEVOTHYROXINE SODIUM. [Concomitant]
     Active Substance: LEVOTHYROXINE SODIUM
     Dosage: 125 ?G, 1-0-0-0, TABLETTEN
     Route: 048

REACTIONS (2)
  - Oedema peripheral [Unknown]
  - Dyspnoea [Unknown]
